FAERS Safety Report 8516881-6 (Version None)
Quarter: 2012Q3

REPORT INFORMATION
  Report Type: 
  Country: None (occurrence: None)
  Receive Date: 20120718
  Receipt Date: 20120709
  Transmission Date: 20120928
  Serious: Yes (Hospitalization)
  Sender: FDA-Public Use
  Company Number: CA-ELI_LILLY_AND_COMPANY-CA201207003405

PATIENT
  Age: 50 Year
  Sex: Female

DRUGS (18)
  1. D-TABS [Concomitant]
  2. CELLCEPT [Concomitant]
  3. TYLENOL (CAPLET) [Concomitant]
     Dosage: UNK, PRN
  4. FORTEO [Suspect]
     Indication: OSTEOPOROSIS
     Dosage: 20 UG, QD
     Route: 058
     Dates: start: 20110520
  5. CALCITONIN SALMON [Concomitant]
  6. CALCIUM [Concomitant]
  7. LOPERAMIDE [Concomitant]
  8. PREDNISONE [Concomitant]
  9. NEORAL [Concomitant]
  10. NYSTATIN [Concomitant]
  11. PROCHLORPERAZINE [Concomitant]
  12. NADOLOL [Concomitant]
  13. PANTOPRAZOLE SODIUM [Concomitant]
  14. ASPIRIN [Concomitant]
  15. FENTANYL [Concomitant]
  16. LASIX [Concomitant]
  17. NORVASC [Concomitant]
  18. MORPHINE [Concomitant]

REACTIONS (1)
  - ROAD TRAFFIC ACCIDENT [None]
